FAERS Safety Report 19104361 (Version 1)
Quarter: 2021Q2

REPORT INFORMATION
  Report Type: Spontaneous
  Country: SK (occurrence: SK)
  Receive Date: 20210407
  Receipt Date: 20210407
  Transmission Date: 20210717
  Serious: Yes (Hospitalization, Other)
  Sender: FDA-Public Use
  Company Number: SK-SA-2021SA104227

PATIENT
  Age: 70 Year
  Sex: Male

DRUGS (4)
  1. FRAXIPARIN [Concomitant]
     Active Substance: NADROPARIN CALCIUM
     Indication: THROMBOCYTOPENIA
     Dosage: 0.6 ML, BID
     Route: 065
  2. HEPARIN [Concomitant]
     Active Substance: HEPARIN SODIUM
     Indication: THROMBOSIS
     Route: 065
  3. CLOPIDOGREL BISULFATE. [Suspect]
     Active Substance: CLOPIDOGREL BISULFATE
     Indication: THROMBOSIS
     Dosage: DOSE WAS INCREASED TO A THERAPEUTIC DOSE OF 1.0 ML / 12 HOURS
  4. ACETYLSALICYLIC ACID [Suspect]
     Active Substance: ASPIRIN
     Indication: THROMBOSIS
     Dosage: DOSE WAS INCREASED TO A THERAPEUTIC DOSE OF 1.0 ML / 12 HOURS

REACTIONS (3)
  - Pulmonary infarction [Unknown]
  - Cardiovascular disorder [Unknown]
  - Lividity [Unknown]
